FAERS Safety Report 17088249 (Version 1)
Quarter: 2019Q4

REPORT INFORMATION
  Report Type: Spontaneous
  Country: SE (occurrence: SE)
  Receive Date: 20191128
  Receipt Date: 20191128
  Transmission Date: 20200122
  Serious: Yes (Hospitalization)
  Sender: FDA-Public Use
  Company Number: SE-PFIZER INC-2019511213

PATIENT
  Sex: Female

DRUGS (2)
  1. SERTRALINE HCL [Suspect]
     Active Substance: SERTRALINE HYDROCHLORIDE
     Dosage: 3000 MG, UNK
     Route: 048
     Dates: start: 20180701, end: 20180701
  2. LERGIGAN [PROMETHAZINE HYDROCHLORIDE] [Suspect]
     Active Substance: PROMETHAZINE HYDROCHLORIDE
     Dosage: 2500 MG, UNK
     Route: 048
     Dates: start: 20180701, end: 20180701

REACTIONS (5)
  - Intentional overdose [Unknown]
  - Intentional self-injury [Unknown]
  - Depressed mood [Unknown]
  - Akathisia [Unknown]
  - Nausea [Unknown]

NARRATIVE: CASE EVENT DATE: 20180701
